FAERS Safety Report 6607499-0 (Version None)
Quarter: 2010Q1

REPORT INFORMATION
  Report Type: 
  Country: None (occurrence: None)
  Receive Date: 20100301
  Receipt Date: 20100216
  Transmission Date: 20100710
  Serious: Yes (Hospitalization)
  Sender: FDA-Public Use
  Company Number: GB-ELI_LILLY_AND_COMPANY-GB201002000863

PATIENT
  Sex: Male

DRUGS (9)
  1. PEMETREXED [Suspect]
     Dosage: UNK, EVERY 3 WEEKS
     Route: 042
     Dates: start: 20090424
  2. FOLIC ACID [Concomitant]
     Indication: PROPHYLAXIS
  3. VITAMIN B-12 [Concomitant]
     Indication: PROPHYLAXIS
  4. DEXAMETHASONE [Concomitant]
     Indication: PROPHYLAXIS
  5. DIAZEPAM [Concomitant]
     Indication: ANXIETY
     Dates: start: 19730101
  6. ORAMORPH SR [Concomitant]
     Indication: PAIN
     Dates: start: 20090421
  7. DIHYDROCODEINE BITARTRATE INJ [Concomitant]
     Indication: PAIN
     Dates: start: 20090520
  8. BISOPROLOL [Concomitant]
     Indication: DRUG THERAPY
     Dates: start: 20091023
  9. MOVICOL [Concomitant]
     Indication: CONSTIPATION
     Dates: start: 20091201

REACTIONS (3)
  - CHOLECYSTITIS [None]
  - PAIN [None]
  - PANCREATITIS [None]
